FAERS Safety Report 9643601 (Version 1)
Quarter: 2013Q4

REPORT INFORMATION
  Report Type: Spontaneous
  Country: FR (occurrence: FR)
  Receive Date: 20131024
  Receipt Date: 20131024
  Transmission Date: 20140711
  Serious: Yes (Hospitalization)
  Sender: FDA-Public Use
  Company Number: FR-GLAXOSMITHKLINE-B0847194A

PATIENT
  Age: 16 Year
  Sex: Female

DRUGS (3)
  1. LAMICTAL [Suspect]
     Indication: EPILEPSY
     Dosage: 25MG PER DAY
     Route: 048
     Dates: start: 20120907, end: 20120923
  2. ZEBINIX [Suspect]
     Indication: EPILEPSY
     Route: 048
     Dates: start: 20120911, end: 20120923
  3. URBANYL [Concomitant]
     Indication: EPILEPSY
     Dates: start: 20120911

REACTIONS (4)
  - Rash morbilliform [Recovered/Resolved]
  - Face oedema [Recovered/Resolved]
  - Hyperthermia [Recovered/Resolved]
  - Headache [Recovered/Resolved]
